FAERS Safety Report 23438879 (Version 3)
Quarter: 2024Q1

REPORT INFORMATION
  Report Type: Spontaneous
  Country: AT (occurrence: AT)
  Receive Date: 20240124
  Receipt Date: 20240313
  Transmission Date: 20240410
  Serious: Yes (Other)
  Sender: FDA-Public Use
  Company Number: AT-SA-SAC20240123000902

PATIENT
  Age: 48 Year
  Sex: Female

DRUGS (1)
  1. DUPIXENT [Suspect]
     Active Substance: DUPILUMAB
     Indication: Dermatitis atopic
     Dosage: 300 MG, QOW
     Dates: start: 20231120

REACTIONS (3)
  - Multiple sclerosis [Recovering/Resolving]
  - Visual impairment [Recovering/Resolving]
  - CD4 lymphocytes decreased [Recovering/Resolving]

NARRATIVE: CASE EVENT DATE: 20231218
